FAERS Safety Report 7310170-3 (Version None)
Quarter: 2011Q1

REPORT INFORMATION
  Report Type: 
  Country: None (occurrence: None)
  Receive Date: 20110224
  Receipt Date: 20110215
  Transmission Date: 20110831
  Serious: No
  Sender: FDA-Public Use
  Company Number: US-PFIZER INC-2010148429

PATIENT
  Age: 39 Year
  Sex: Male
  Weight: 74.376 kg

DRUGS (1)
  1. ALAVERT [Suspect]
     Dosage: 1 TABLET, PRN
     Route: 048
     Dates: start: 20101001, end: 20101001

REACTIONS (1)
  - DRUG INEFFECTIVE [None]
